FAERS Safety Report 5381744-4 (Version None)
Quarter: 2007Q3

REPORT INFORMATION
  Report Type: 
  Country: None (occurrence: None)
  Receive Date: 20070709
  Receipt Date: 20070628
  Transmission Date: 20080115
  Serious: Yes (Other)
  Sender: FDA-Public Use
  Company Number: PHBS2007IL09789

PATIENT
  Age: 43 Year
  Sex: Female
  Weight: 48 kg

DRUGS (3)
  1. DIMITONE [Concomitant]
  2. CALCIUM WITH VITAMIN D [Concomitant]
  3. EXJADE [Suspect]
     Indication: IRON OVERLOAD
     Dosage: 1000 MG/D
     Route: 048
     Dates: start: 20060801

REACTIONS (8)
  - ABDOMINAL PAIN [None]
  - ABDOMINAL PAIN UPPER [None]
  - ANOREXIA [None]
  - DYSPEPSIA [None]
  - GASTRIC ULCER [None]
  - GASTRITIS [None]
  - NAUSEA [None]
  - WEIGHT DECREASED [None]
